FAERS Safety Report 7583275-X (Version None)
Quarter: 2011Q2

REPORT INFORMATION
  Report Type: 
  Country: None (occurrence: None)
  Receive Date: 20110630
  Receipt Date: 20110617
  Transmission Date: 20111010
  Serious: Yes (Other)
  Sender: FDA-Public Use
  Company Number: US-JNJFOC-20110608801

PATIENT
  Sex: Female

DRUGS (6)
  1. REMICADE [Suspect]
     Indication: ARTHRITIS
     Route: 042
     Dates: start: 20100101
  2. HYDROCHLOROTHIAZIDE [Concomitant]
     Indication: BLOOD PRESSURE
     Dosage: DAILY
     Route: 048
  3. XALATAN [Concomitant]
     Indication: GLAUCOMA
     Dosage: DAILY
     Route: 047
  4. AVAPRO [Concomitant]
     Indication: BLOOD PRESSURE
     Route: 048
  5. SYNTHROID [Concomitant]
     Indication: THYROID DISORDER
     Route: 048
  6. TIMOLOL MALEATE [Concomitant]
     Indication: GLAUCOMA
     Dosage: TWICE DAILY
     Route: 047

REACTIONS (4)
  - MUSCULOSKELETAL PAIN [None]
  - MENISCUS LESION [None]
  - DISCOMFORT [None]
  - ARTHRALGIA [None]
